FAERS Safety Report 8210343-1 (Version None)
Quarter: 2012Q1

REPORT INFORMATION
  Report Type: 
  Country: None (occurrence: None)
  Receive Date: 20120314
  Receipt Date: 20120117
  Transmission Date: 20120608
  Serious: No
  Sender: FDA-Public Use
  Company Number: AE-ASTRAZENECA-2012SE03475

PATIENT
  Sex: Male

DRUGS (3)
  1. ETHYLENEDIAMINE [Suspect]
  2. TOPROL-XL [Suspect]
     Route: 048
  3. HYDROCHLORIDE [Suspect]

REACTIONS (1)
  - DRUG HYPERSENSITIVITY [None]
